FAERS Safety Report 4969371-1 (Version None)
Quarter: 2006Q2

REPORT INFORMATION
  Report Type: 
  Country: None (occurrence: None)
  Receive Date: 20060405
  Receipt Date: 20060321
  Transmission Date: 20061013
  Serious: Yes (Hospitalization)
  Sender: FDA-Public Use
  Company Number: GXKR2006US01677

PATIENT
  Age: 63 Year
  Sex: Male

DRUGS (7)
  1. AMIODARONE HYDROCHLORIDE [Suspect]
     Indication: ATRIAL FIBRILLATION
     Dosage: ORAL  ; 200 MG QD, ORAL
     Route: 048
  2. AMIODARONE HYDROCHLORIDE [Suspect]
     Indication: ATRIAL FIBRILLATION
     Dosage: ORAL  ; 200 MG QD, ORAL
     Route: 048
  3. FUROSEMIDE [Suspect]
  4. ASPIRIN [Concomitant]
  5. ROSIGLITAZONE [Concomitant]
  6. LOVASTATIN [Concomitant]
  7. WARFARIN [Concomitant]

REACTIONS (7)
  - ASCITES [None]
  - CHRONIC HEPATITIS [None]
  - GYNAECOMASTIA [None]
  - HEPATIC CIRRHOSIS [None]
  - INCORRECT DRUG ADMINISTRATION DURATION [None]
  - OEDEMA PERIPHERAL [None]
  - SPIDER NAEVUS [None]
